FAERS Safety Report 4897451-8 (Version None)
Quarter: 2006Q1

REPORT INFORMATION
  Report Type: 
  Country: None (occurrence: None)
  Receive Date: 20060201
  Receipt Date: 20060126
  Transmission Date: 20060701
  Serious: Yes (Death)
  Sender: FDA-Public Use
  Company Number: US-AVENTIS-200610961US

PATIENT
  Age: 51 Year
  Sex: Male

DRUGS (1)
  1. LOVENOX [Suspect]
     Indication: HIP ARTHROPLASTY
     Route: 058
     Dates: start: 20051201, end: 20060101

REACTIONS (1)
  - PULMONARY EMBOLISM [None]
